FAERS Safety Report 8141672-8 (Version None)
Quarter: 2012Q1

REPORT INFORMATION
  Report Type: 
  Country: None (occurrence: None)
  Receive Date: 20120216
  Receipt Date: 20120206
  Transmission Date: 20120608
  Serious: Yes (Other)
  Sender: FDA-Public Use
  Company Number: PHHY2012BR002569

PATIENT
  Age: 88 Year
  Sex: Female

DRUGS (2)
  1. EXELON [Suspect]
     Indication: DEMENTIA ALZHEIMER'S TYPE
     Dosage: 9.5 MG, ONE PATCH A DAY
     Route: 062
  2. PROLOPA [Concomitant]
     Indication: PARKINSON'S DISEASE
     Dosage: 2 TABLETS DAILY
     Route: 048

REACTIONS (4)
  - MENTAL DISORDER [None]
  - INTENTIONAL SELF-INJURY [None]
  - FEAR [None]
  - SELF-INJURIOUS IDEATION [None]
